FAERS Safety Report 5206803-8 (Version None)
Quarter: 2006Q4

REPORT INFORMATION
  Report Type: 
  Country: None (occurrence: None)
  Receive Date: 20061026
  Receipt Date: 20060724
  Transmission Date: 20070319
  Serious: No
  Sender: FDA-Public Use
  Company Number: 2006092033

PATIENT
  Age: 64 Year
  Sex: Female
  Weight: 135.1719 kg

DRUGS (6)
  1. LYRICA [Suspect]
     Indication: DIABETIC NEUROPATHY
     Dosage: (1 IN 1 D) ORAL
     Route: 048
     Dates: start: 20060101, end: 20060101
  2. INSULIN (INSULIN) [Concomitant]
  3. WARFARIN SODIUM [Concomitant]
  4. SYNTHROID [Concomitant]
  5. LOPRESSOR [Concomitant]
  6. RENAGEL [Concomitant]

REACTIONS (4)
  - PRURITUS [None]
  - RASH MACULAR [None]
  - SCAR [None]
  - URTICARIA [None]
